FAERS Safety Report 10398678 (Version 1)
Quarter: 2014Q3

REPORT INFORMATION
  Report Type: Spontaneous
  Country: US (occurrence: None)
  Receive Date: 20140819
  Receipt Date: 20140819
  Transmission Date: 20150326
  Serious: Yes (Other)
  Sender: FDA-Public Use
  Company Number: AUR-APL-2014-08737

PATIENT
  Age: 71 Year
  Sex: Female

DRUGS (19)
  1. BUMETANIDE. [Concomitant]
     Active Substance: BUMETANIDE
  2. METOPROLOL [Suspect]
     Active Substance: METOPROLOL
     Indication: CARDIAC FAILURE CONGESTIVE
     Route: 048
     Dates: start: 2013, end: 2013
  3. METOPROLOL [Suspect]
     Active Substance: METOPROLOL
     Indication: ATRIAL FIBRILLATION
     Route: 048
     Dates: start: 2013, end: 2013
  4. TENORMIN [Suspect]
     Active Substance: ATENOLOL
     Indication: PRODUCT USED FOR UNKNOWN INDICATION
     Route: 048
  5. TOPROL XL [Suspect]
     Active Substance: METOPROLOL SUCCINATE
     Indication: CARDIAC FAILURE CONGESTIVE
     Route: 048
  6. TOPROL XL [Suspect]
     Active Substance: METOPROLOL SUCCINATE
     Indication: ATRIAL FIBRILLATION
     Route: 048
  7. SYNTHROID [Concomitant]
     Active Substance: LEVOTHYROXINE SODIUM
  8. ALDACTONE /00006201/ (SPIRONOLACTONE) [Concomitant]
  9. FLUTICASONE PROPIONATE. [Concomitant]
     Active Substance: FLUTICASONE PROPIONATE
  10. POTASSIUM CHLORIDE. [Concomitant]
     Active Substance: POTASSIUM CHLORIDE
  11. PROVIGIL /01265601/ (MODAFINIL) [Concomitant]
  12. ZYRTEC [Concomitant]
     Active Substance: CETIRIZINE HYDROCHLORIDE
  13. COUMADIN [Concomitant]
     Active Substance: WARFARIN SODIUM
  14. KLONOPIN (CLONAZEPAM) [Concomitant]
  15. TRAZODONE [Concomitant]
     Active Substance: TRAZODONE HYDROCHLORIDE
  16. DOGOXIN [Concomitant]
  17. DEXILANT [Concomitant]
     Active Substance: DEXLANSOPRAZOLE
  18. AZELASTINE HYDROCHLORIDE. [Concomitant]
     Active Substance: AZELASTINE HYDROCHLORIDE
  19. CLARITINE (LORATADINE) [Concomitant]

REACTIONS (10)
  - Respiratory disorder [None]
  - Lung infection [None]
  - Bronchitis [None]
  - Bacterial infection [None]
  - Scar [None]
  - Heart rate irregular [None]
  - Off label use [None]
  - Pneumonia [None]
  - Pulmonary fibrosis [None]
  - Drug ineffective [None]

NARRATIVE: CASE EVENT DATE: 2013
